FAERS Safety Report 6156865-9 (Version None)
Quarter: 2009Q2

REPORT INFORMATION
  Report Type: 
  Country: None (occurrence: None)
  Receive Date: 20090413
  Receipt Date: 20090209
  Transmission Date: 20091009
  Serious: No
  Sender: FDA-Public Use
  Company Number: 2009BM000033

PATIENT
  Age: 21 Month
  Sex: Female

DRUGS (2)
  1. KUVAN [Suspect]
     Indication: PHENYLKETONURIA
     Dosage: 200 MG;QD;PO
     Route: 048
     Dates: start: 20090126
  2. MOTRIN (CON.) [Concomitant]

REACTIONS (4)
  - BLOOD AMINO ACID LEVEL INCREASED [None]
  - DECREASED APPETITE [None]
  - IRRITABILITY [None]
  - NASOPHARYNGITIS [None]
